FAERS Safety Report 4576442-0 (Version None)
Quarter: 2005Q1

REPORT INFORMATION
  Report Type: 
  Country: None (occurrence: None)
  Receive Date: 20050209
  Receipt Date: 20030806
  Transmission Date: 20050727
  Serious: Yes (Hospitalization, Disabling)
  Sender: FDA-Public Use
  Company Number: US-MERCK-0308USA00751

PATIENT
  Age: 50 Year
  Sex: Male
  Weight: 77 kg

DRUGS (10)
  1. VIOXX [Suspect]
     Indication: OSTEOARTHRITIS
     Route: 048
     Dates: start: 20010410, end: 20010101
  2. VIOXX [Suspect]
     Route: 048
     Dates: start: 20010101, end: 20010723
  3. VIOXX [Suspect]
     Indication: CARPAL TUNNEL SYNDROME
     Route: 048
     Dates: start: 20010410, end: 20010101
  4. VIOXX [Suspect]
     Route: 048
     Dates: start: 20010101, end: 20010723
  5. CEFTIN [Concomitant]
     Route: 048
  6. PERCOCET [Concomitant]
     Route: 048
  7. VICODIN ES [Concomitant]
     Route: 048
     Dates: end: 20010723
  8. AMBIEN [Concomitant]
     Route: 048
     Dates: end: 20010701
  9. ZOLOFT [Concomitant]
     Route: 048
  10. ZOLOFT [Concomitant]
     Route: 048
     Dates: end: 20010701

REACTIONS (11)
  - ACUTE MYOCARDIAL INFARCTION [None]
  - ANGINA PECTORIS [None]
  - CARPAL TUNNEL SYNDROME [None]
  - CORONARY ARTERY DISEASE [None]
  - EMOTIONAL DISTRESS [None]
  - HYPERLIPIDAEMIA [None]
  - HYPERTENSION [None]
  - MITRAL VALVE PROLAPSE [None]
  - SLEEP APNOEA SYNDROME [None]
  - THROMBOSIS [None]
  - TRIGGER FINGER [None]
